FAERS Safety Report 12895047 (Version 1)
Quarter: 2016Q4

REPORT INFORMATION
  Report Type: Report from Study
  Country: FR (occurrence: FR)
  Receive Date: 20161029
  Receipt Date: 20161029
  Transmission Date: 20170207
  Serious: Yes (Other)
  Sender: FDA-Public Use
  Company Number: FR-AMGEN-FRANI2016150793

PATIENT
  Age: 54 Year
  Sex: Male
  Weight: 106 kg

DRUGS (5)
  1. STELARA [Suspect]
     Active Substance: USTEKINUMAB
     Dosage: 90 MG, EVERY 12 WEEKS
     Route: 058
     Dates: start: 20140315
  2. STELARA [Suspect]
     Active Substance: USTEKINUMAB
     Indication: PSORIASIS
     Dosage: 90 MG, EVERY 4 WEEKS
     Route: 058
     Dates: start: 20140215, end: 20140315
  3. ETANERCEPT [Suspect]
     Active Substance: ETANERCEPT
     Indication: PSORIASIS
     Dosage: 50 MG, WEEKLY
     Route: 058
     Dates: start: 201112, end: 201212
  4. METHOTREXATE SODIUM. [Suspect]
     Active Substance: METHOTREXATE SODIUM
     Indication: PSORIASIS
     Dosage: UNK, WEEKLY
     Route: 065
     Dates: start: 200909, end: 201004
  5. HUMIRA [Suspect]
     Active Substance: ADALIMUMAB
     Indication: PSORIASIS
     Dosage: 1 INJECTION OF 40 MG, EVERY 2 WEEKS
     Route: 058
     Dates: start: 201212, end: 201306

REACTIONS (2)
  - Sebaceous adenoma [Unknown]
  - Squamous cell carcinoma [Unknown]
